FAERS Safety Report 4414813-3 (Version None)
Quarter: 2004Q3

REPORT INFORMATION
  Report Type: 
  Country: None (occurrence: None)
  Receive Date: 20040804
  Receipt Date: 20031024
  Transmission Date: 20050211
  Serious: No
  Sender: FDA-Public Use
  Company Number: US-BRISTOL-MYERS SQUIBB COMPANY-12418877

PATIENT
  Age: 51 Year
  Sex: Female

DRUGS (6)
  1. GLUCOVANCE [Suspect]
     Indication: DIABETES MELLITUS
     Dosage: DOSAGE FORM = TABLET (5MG/500MG PER TABLET)
     Route: 048
  2. PROZAC [Concomitant]
  3. AVANDIA [Concomitant]
  4. DIOVAN [Concomitant]
  5. LEVOXYL [Concomitant]
  6. PRILOSEC [Concomitant]

REACTIONS (1)
  - BLOOD GLUCOSE INCREASED [None]
